FAERS Safety Report 21112630 (Version 1)
Quarter: 2022Q3

REPORT INFORMATION
  Report Type: Spontaneous
  Country: US (occurrence: US)
  Receive Date: 20220721
  Receipt Date: 20220721
  Transmission Date: 20221027
  Serious: No
  Sender: FDA-Public Use
  Company Number: US-PERRIGO-21US032911

PATIENT
  Age: 21 Year
  Sex: Male
  Weight: 86.168 kg

DRUGS (1)
  1. MINOXIDIL [Suspect]
     Active Substance: MINOXIDIL
     Indication: Alopecia
     Dosage: 1 ML, ONCE DAILY TO ONCE EVERY OTHER DAY
     Route: 061
     Dates: start: 202105, end: 202110

REACTIONS (3)
  - Pruritus [Recovering/Resolving]
  - Application site pruritus [Recovered/Resolved]
  - Inappropriate schedule of product administration [Recovered/Resolved]

NARRATIVE: CASE EVENT DATE: 20210501
